FAERS Safety Report 21336089 (Version 3)
Quarter: 2024Q2

REPORT INFORMATION
  Report Type: Other
  Country: DE (occurrence: None)
  Receive Date: 20220915
  Receipt Date: 20240611
  Transmission Date: 20240716
  Serious: No
  Sender: FDA-Public Use
  Company Number: DE-ROCHE-3179937

PATIENT
  Age: 27 Year
  Sex: Female

DRUGS (8)
  1. OCREVUS [Suspect]
     Active Substance: OCRELIZUMAB
     Indication: Relapsing-remitting multiple sclerosis
     Dosage: SUBSEQUENT DOSAGE ON 27/ NOV/2021 300 MG AND 19/MAY/2022 600 MG.
     Route: 042
     Dates: start: 20211013
  2. RAMIPRIL [Concomitant]
     Active Substance: RAMIPRIL
  3. METFORMIN [Concomitant]
     Active Substance: METFORMIN HYDROCHLORIDE
  4. QUETIAPINE [Concomitant]
     Active Substance: QUETIAPINE
  5. LEVOTHYROXINE [Concomitant]
     Active Substance: LEVOTHYROXINE\LEVOTHYROXINE SODIUM
     Dosage: 125 MICROGRAM AND 120 MICROGRAM ON AN ALTERNATING BASIS
  6. BUPROPION [Concomitant]
     Active Substance: BUPROPION
  7. MODAFINIL [Concomitant]
     Active Substance: MODAFINIL
  8. CHOLECALCIFEROL [Concomitant]
     Active Substance: CHOLECALCIFEROL

REACTIONS (8)
  - COVID-19 [Recovered/Resolved]
  - Tonsillitis [Recovered/Resolved]
  - Noninfective sialoadenitis [Recovered/Resolved]
  - Fatigue [Recovered/Resolved]
  - Headache [Recovered/Resolved]
  - Sleep disorder [Recovered/Resolved]
  - Pain in extremity [Recovered/Resolved]
  - Wrong technique in product usage process [Unknown]

NARRATIVE: CASE EVENT DATE: 20211013
